FAERS Safety Report 18242728 (Version 2)
Quarter: 2020Q3

REPORT INFORMATION
  Report Type: Spontaneous
  Country: US (occurrence: US)
  Receive Date: 20200908
  Receipt Date: 20200918
  Transmission Date: 20201103
  Serious: Yes (Hospitalization)
  Sender: FDA-Public Use
  Company Number: US-JNJFOC-A-US2020-202826

PATIENT
  Age: 47 Year
  Sex: Female
  Weight: 47.67 kg

DRUGS (6)
  1. VELETRI [Suspect]
     Active Substance: EPOPROSTENOL
     Route: 042
  2. REVATIO [Concomitant]
     Active Substance: SILDENAFIL CITRATE
  3. XARELTO [Concomitant]
     Active Substance: RIVAROXABAN
  4. VELETRI [Suspect]
     Active Substance: EPOPROSTENOL
     Dosage: 25 NG/KG, PER MIN
     Route: 042
  5. OPSUMIT [Suspect]
     Active Substance: MACITENTAN
     Indication: PULMONARY ARTERIAL HYPERTENSION
     Dosage: 10 MG, QD
     Route: 048
  6. VELETRI [Suspect]
     Active Substance: EPOPROSTENOL
     Indication: PULMONARY ARTERIAL HYPERTENSION
     Dosage: 27 NG/KG, PER MIN
     Route: 042

REACTIONS (12)
  - Pulmonary hypertension [Unknown]
  - Accidental overdose [Recovered/Resolved]
  - Hospitalisation [Unknown]
  - Chest pain [Unknown]
  - Dyspnoea [Unknown]
  - Oedema [Unknown]
  - Pneumonia [Unknown]
  - Palpitations [Unknown]
  - Fluid retention [Unknown]
  - Hyperhidrosis [Not Recovered/Not Resolved]
  - Flushing [Unknown]
  - Feeling hot [Not Recovered/Not Resolved]
